FAERS Safety Report 6918639-8 (Version None)
Quarter: 2010Q3

REPORT INFORMATION
  Report Type: 
  Country: None (occurrence: None)
  Receive Date: 20100811
  Receipt Date: 20100730
  Transmission Date: 20110219
  Serious: Yes (Other)
  Sender: FDA-Public Use
  Company Number: US-PFIZER INC-2010096127

PATIENT
  Sex: Female
  Weight: 95.2 kg

DRUGS (6)
  1. TIKOSYN [Suspect]
     Indication: ARRHYTHMIA
     Dosage: 500 UG, 2X/DAY
     Route: 048
     Dates: start: 20091113
  2. XANAX [Concomitant]
     Indication: SLEEP DISORDER
     Dosage: 5 MG, 1X/DAY
     Route: 048
  3. CRESTOR [Concomitant]
     Indication: BLOOD CHOLESTEROL INCREASED
     Dosage: 40 MG, 1X/DAY
     Route: 048
  4. DURAGESIC-100 [Concomitant]
     Indication: PAIN
     Dosage: UNK
  5. PERCOCET [Concomitant]
     Indication: PAIN
     Dosage: UNK
  6. OXYCODONE [Concomitant]
     Indication: PAIN
     Dosage: UNK

REACTIONS (1)
  - WEIGHT INCREASED [None]
